FAERS Safety Report 24292648 (Version 1)
Quarter: 2024Q3

REPORT INFORMATION
  Report Type: Spontaneous
  Country: US (occurrence: None)
  Receive Date: 20240906
  Receipt Date: 20240906
  Transmission Date: 20241016
  Serious: Yes (Life-Threatening, Hospitalization, Disabling, Other)
  Sender: Public
  Company Number: None

PATIENT
  Age: 34 Year
  Sex: Female
  Weight: 69.75 kg

DRUGS (1)
  1. LEVOFLOXACIN [Suspect]
     Active Substance: LEVOFLOXACIN
     Dates: start: 20240830, end: 20240830

REACTIONS (11)
  - Contraindicated product administered [None]
  - Product administration error [None]
  - Tendonitis [None]
  - Bursitis [None]
  - Myoclonus [None]
  - Diplopia [None]
  - Hallucination [None]
  - Narcolepsy [None]
  - Aneurysm [None]
  - Ischaemic stroke [None]
  - Spinal cord injury [None]

NARRATIVE: CASE EVENT DATE: 20240830
